FAERS Safety Report 9301360 (Version 1)
Quarter: 2013Q2

REPORT INFORMATION
  Report Type: Spontaneous
  Country: US (occurrence: US)
  Receive Date: 20130521
  Receipt Date: 20130521
  Transmission Date: 20140414
  Serious: Yes (Other)
  Sender: FDA-Public Use
  Company Number: US-ABBOTT-13P-163-1090575-00

PATIENT
  Age: 63 Year
  Sex: Female
  Weight: 58.11 kg

DRUGS (7)
  1. HUMIRA [Suspect]
     Indication: CROHN^S DISEASE
     Dates: start: 20121022, end: 20130304
  2. ENTOCORT [Concomitant]
     Indication: CROHN^S DISEASE
  3. SYNTHROID [Concomitant]
     Indication: HYPOTHYROIDISM
  4. ZESTRIL [Concomitant]
     Indication: HYPERTENSION
  5. TRICOR [Concomitant]
     Indication: BLOOD CHOLESTEROL INCREASED
  6. NEXIUM [Concomitant]
     Indication: GASTROOESOPHAGEAL REFLUX DISEASE
  7. VITAMINS NOS [Concomitant]
     Indication: PRODUCT USED FOR UNKNOWN INDICATION

REACTIONS (3)
  - Small intestinal stenosis [Recovered/Resolved]
  - Crohn^s disease [Recovered/Resolved]
  - Arthritis [Not Recovered/Not Resolved]
